FAERS Safety Report 4954055-6 (Version None)
Quarter: 2006Q1

REPORT INFORMATION
  Report Type: 
  Country: None (occurrence: None)
  Receive Date: 20060322
  Receipt Date: 20060307
  Transmission Date: 20060701
  Serious: Yes (Hospitalization)
  Sender: FDA-Public Use
  Company Number: 2006-0009125

PATIENT
  Age: 59 Year
  Sex: Male

DRUGS (2)
  1. HEPSERA [Suspect]
     Indication: HEPATITIS B
     Dosage: 10 MG, 1 IN 1 D, ORAL
     Route: 048
     Dates: start: 20050104
  2. LAMIVUDINE [Suspect]
     Indication: HEPATIC CIRRHOSIS
     Dosage: 100 MG, 1 IN 1 D, ORAL
     Route: 048
     Dates: start: 20010405

REACTIONS (4)
  - ASCITES [None]
  - DISEASE PROGRESSION [None]
  - OESOPHAGEAL VARICES HAEMORRHAGE [None]
  - PROTHROMBIN TIME PROLONGED [None]
